FAERS Safety Report 8461488-2 (Version None)
Quarter: 2012Q2

REPORT INFORMATION
  Report Type: 
  Country: None (occurrence: None)
  Receive Date: 20120625
  Receipt Date: 20120615
  Transmission Date: 20120825
  Serious: Yes (Hospitalization)
  Sender: FDA-Public Use
  Company Number: US-US-EMD SERONO, INC.-7027165

PATIENT
  Sex: Female
  Weight: 89 kg

DRUGS (9)
  1. KLONOPIN [Concomitant]
     Indication: ANXIETY
     Dates: end: 20100101
  2. OMEPRAZOLE [Concomitant]
     Indication: GASTROOESOPHAGEAL REFLUX DISEASE
  3. REBIF [Suspect]
     Dates: end: 20101014
  4. BENADRYL [Concomitant]
     Indication: PRODUCT USED FOR UNKNOWN INDICATION
  5. CONCERTA [Concomitant]
     Indication: ATTENTION DEFICIT/HYPERACTIVITY DISORDER
  6. TOPAMAX [Concomitant]
     Indication: ANXIETY
     Dates: end: 20100101
  7. TOPAMAX [Concomitant]
     Indication: EATING DISORDER
  8. REBIF [Suspect]
     Indication: MULTIPLE SCLEROSIS
     Dates: start: 20100810
  9. IMITREX [Concomitant]
     Indication: HEADACHE

REACTIONS (3)
  - DEPRESSED MOOD [None]
  - SUICIDE ATTEMPT [None]
  - INTENTIONAL OVERDOSE [None]
